FAERS Safety Report 5122254-9 (Version None)
Quarter: 2006Q4

REPORT INFORMATION
  Report Type: 
  Country: None (occurrence: None)
  Receive Date: 20061006
  Receipt Date: 20060928
  Transmission Date: 20070319
  Serious: Yes (Hospitalization)
  Sender: FDA-Public Use
  Company Number: FR-MERCK-0609FRA00072

PATIENT
  Age: 27 Year
  Sex: Female

DRUGS (12)
  1. PRIMAXIN [Suspect]
     Indication: PNEUMONIA
     Route: 042
     Dates: start: 20060501, end: 20060519
  2. PRIMAXIN [Suspect]
     Route: 042
     Dates: start: 20060526, end: 20060527
  3. PRIMAXIN [Suspect]
     Indication: URINARY TRACT INFECTION
     Route: 042
     Dates: start: 20060501, end: 20060519
  4. PRIMAXIN [Suspect]
     Route: 042
     Dates: start: 20060526, end: 20060527
  5. AMIKACIN SULFATE [Concomitant]
     Indication: URINARY TRACT INFECTION
     Route: 042
     Dates: start: 20060526
  6. CEFOTAXIME SODIUM [Concomitant]
     Indication: URINARY TRACT INFECTION
     Route: 042
     Dates: start: 20060505, end: 20060508
  7. OFLOXACIN [Concomitant]
     Indication: URINARY TRACT INFECTION
     Route: 042
     Dates: start: 20060505, end: 20060508
  8. TEICOPLANIN [Suspect]
     Indication: URINARY TRACT INFECTION
     Route: 042
     Dates: start: 20060505, end: 20060508
  9. TEICOPLANIN [Suspect]
     Route: 042
     Dates: start: 20060517, end: 20060519
  10. TEICOPLANIN [Suspect]
     Indication: PNEUMONIA
     Route: 042
     Dates: start: 20060505, end: 20060508
  11. TEICOPLANIN [Suspect]
     Route: 042
     Dates: start: 20060517, end: 20060519
  12. VORICONAZOLE [Suspect]
     Indication: PNEUMONIA
     Route: 042
     Dates: start: 20060501, end: 20060519

REACTIONS (2)
  - AGRANULOCYTOSIS [None]
  - RASH PUSTULAR [None]
